FAERS Safety Report 23501897 (Version 1)
Quarter: 2024Q1

REPORT INFORMATION
  Report Type: Spontaneous
  Country: US (occurrence: US)
  Receive Date: 20240208
  Receipt Date: 20240208
  Transmission Date: 20240409
  Serious: No
  Sender: FDA-Public Use
  Company Number: US-PFIZER INC-PV202200007264

PATIENT
  Age: 79 Year
  Sex: Female

DRUGS (2)
  1. IBRANCE [Suspect]
     Active Substance: PALBOCICLIB
     Indication: Breast cancer female
     Dosage: DAILY, 7 DAYS ON 7 DAYS OFF
     Route: 048
     Dates: start: 20221220
  2. IBRANCE [Suspect]
     Active Substance: PALBOCICLIB
     Dosage: DAILY, 7 DAYS ON AND 14 DAYS OFF. THEN REPEAT
     Route: 048
     Dates: start: 20231130

REACTIONS (3)
  - Illness [Unknown]
  - Off label use [Unknown]
  - Product use issue [Unknown]
